FAERS Safety Report 20691280 (Version 5)
Quarter: 2022Q2

REPORT INFORMATION
  Report Type: Report from Study
  Country: US (occurrence: US)
  Receive Date: 20220408
  Receipt Date: 20220606
  Transmission Date: 20220720
  Serious: Yes (Life-Threatening, Hospitalization)
  Sender: FDA-Public Use
  Company Number: US-009507513-2108USA006736

PATIENT
  Age: 58 Year
  Sex: Male
  Weight: 102.9 kg

DRUGS (18)
  1. BELZUTIFAN [Suspect]
     Active Substance: BELZUTIFAN
     Indication: Clear cell renal cell carcinoma
     Dosage: 200 MILLIGRAM, QD;
     Route: 048
     Dates: start: 20210609, end: 20210823
  2. BELZUTIFAN [Suspect]
     Active Substance: BELZUTIFAN
     Dosage: 120 MILLIGRAM, QD
     Route: 048
     Dates: start: 20210914
  3. PROVENTIL [Suspect]
     Active Substance: ALBUTEROL
     Indication: Dyspnoea
     Dosage: TOTAL DAILY DOSE: 90 MICROGRAM, PRN; FORMULATION: INHALANT
     Route: 055
     Dates: start: 20210706, end: 20210831
  4. TRIAMCINOLONE [Concomitant]
     Active Substance: TRIAMCINOLONE
     Indication: Pruritus
     Dosage: TOTAL DAILY DOSE: 0.1 %
     Route: 061
     Dates: start: 20010430
  5. LORATADINE [Concomitant]
     Active Substance: LORATADINE
     Indication: Hypersensitivity
     Dosage: 10 MILLIGRAM, QD
     Route: 048
     Dates: start: 20210430
  6. PANTOPRAZOLE [Concomitant]
     Active Substance: PANTOPRAZOLE
     Indication: Gastrooesophageal reflux disease
     Dosage: 20 MILLIGRAM, QD
     Route: 048
     Dates: start: 20210430
  7. LOSARTAN [Concomitant]
     Active Substance: LOSARTAN
     Indication: Hypertension
     Dosage: 100 MILLIGRAM, QD
     Route: 048
     Dates: start: 20210430
  8. FLUTICASONE PROPIONATE\SALMETEROL XINAFOATE [Concomitant]
     Active Substance: FLUTICASONE PROPIONATE\SALMETEROL XINAFOATE
     Indication: Asthma
     Dosage: TOTAL DAILY DOSE: 0.05 MG; FORMULATION: INHALANT
     Route: 055
     Dates: start: 20210430
  9. COLCHICINE [Concomitant]
     Active Substance: COLCHICINE
     Indication: Gout
     Dosage: 1.2 MILLIGRAM, QD
     Route: 048
     Dates: start: 20210430
  10. MONTELUKAST [Concomitant]
     Active Substance: MONTELUKAST SODIUM
     Indication: Asthma
     Dosage: 10 MILLIGRAM, QD
     Route: 048
     Dates: start: 20210430
  11. AMLODIPINE [Concomitant]
     Active Substance: AMLODIPINE BESYLATE
     Indication: Hypertension
     Dosage: 10 MILLIGRAM, QD
     Route: 048
     Dates: start: 20210430, end: 20210827
  12. PROCRIT [Concomitant]
     Active Substance: ERYTHROPOIETIN
     Indication: Anaemia
     Dosage: TOTAL DAILY DOSE: 40000 U
     Route: 058
     Dates: start: 20210720, end: 20211220
  13. PROCRIT [Concomitant]
     Active Substance: ERYTHROPOIETIN
     Dosage: 40000 U, ONCE
     Route: 058
     Dates: start: 20210813, end: 20210813
  14. PROCRIT [Concomitant]
     Active Substance: ERYTHROPOIETIN
     Dosage: 40000 U, ONCE
     Route: 058
     Dates: start: 20210820, end: 20210820
  15. BENZONATATE [Concomitant]
     Active Substance: BENZONATATE
     Indication: Cough
     Dosage: TOTAL DAILY DOSE: 100 MG; FORMULATION: PILL
     Route: 048
     Dates: start: 20210402
  16. ARGININE [Concomitant]
     Active Substance: ARGININE
     Indication: Routine health maintenance
     Dosage: 500 MILLIGRAM, QD
     Route: 048
     Dates: start: 202101, end: 20210831
  17. FLONASE [Concomitant]
     Active Substance: FLUTICASONE PROPIONATE
     Indication: Rhinitis allergic
     Dosage: TOTAL DAILY DOSE: 50 UG, PRN; FORMULATION: SPRAY
     Route: 055
     Dates: start: 202101
  18. LORATADINE [Concomitant]
     Active Substance: LORATADINE
     Indication: Rhinitis allergic
     Dosage: TOTAL DAILY DOSE: 50 UG, PRN
     Route: 048
     Dates: start: 202101

REACTIONS (2)
  - Hypoxia [Recovered/Resolved]
  - Atrial fibrillation [Recovered/Resolved]

NARRATIVE: CASE EVENT DATE: 20210821
